FAERS Safety Report 26150074 (Version 1)
Quarter: 2025Q4

REPORT INFORMATION
  Report Type: Spontaneous
  Country: US (occurrence: US)
  Receive Date: 20251212
  Receipt Date: 20251212
  Transmission Date: 20260118
  Serious: Yes (Hospitalization)
  Sender: MYLAN
  Company Number: US-MYLANLABS-2025M1106052

PATIENT
  Age: 54 Year
  Sex: Male

DRUGS (4)
  1. DOXORUBICIN HYDROCHLORIDE [Suspect]
     Active Substance: DOXORUBICIN HYDROCHLORIDE
     Indication: Follicular thyroid cancer
     Dosage: UNK, AS AN EMULSION WITH ENDOTHELIALISED OIL AND EMBOZENE MICROSPHERES
  2. DOXORUBICIN HYDROCHLORIDE [Suspect]
     Active Substance: DOXORUBICIN HYDROCHLORIDE
     Indication: Metastasis
  3. MITOMYCIN C [Suspect]
     Active Substance: MITOMYCIN
     Indication: Follicular thyroid cancer
     Dosage: UNK,AS AN EMULSION WITH ENDOTHELIALISED OIL AND EMBOZENE MICROSPHERES
  4. MITOMYCIN C [Suspect]
     Active Substance: MITOMYCIN
     Indication: Metastasis

REACTIONS (1)
  - Myelitis transverse [Recovering/Resolving]
